FAERS Safety Report 9699247 (Version 1)
Quarter: 2013Q4

REPORT INFORMATION
  Report Type: Spontaneous
  Country: US (occurrence: US)
  Receive Date: 20131120
  Receipt Date: 20131120
  Transmission Date: 20140711
  Serious: No
  Sender: FDA-Public Use
  Company Number: US-GILEAD-2008-0015190

PATIENT
  Sex: Male
  Weight: 68.95 kg

DRUGS (13)
  1. LETAIRIS [Suspect]
     Indication: PULMONARY ARTERIAL HYPERTENSION
     Route: 048
     Dates: start: 20071201
  2. LASIX [Concomitant]
     Dosage: UD
     Route: 048
  3. AGGRENOX [Concomitant]
     Dosage: UD
     Route: 048
  4. HUMALOG [Concomitant]
     Dosage: UD
     Route: 058
  5. LANTUS [Concomitant]
     Dosage: UD
     Route: 058
  6. SINGULAIR [Concomitant]
     Dosage: UD
     Route: 048
  7. ALBUTEROL [Concomitant]
     Dosage: UD
     Route: 055
  8. THEOPHYLLINE [Concomitant]
     Dosage: UD
     Route: 048
  9. LIPITOR [Concomitant]
     Dosage: UD
     Route: 048
  10. VICODIN [Concomitant]
     Dosage: UD
     Route: 048
  11. NEXIUM [Concomitant]
     Dosage: UD
     Route: 048
  12. FLOMAX [Concomitant]
     Dosage: UD
     Route: 048
  13. POTASSIUM CHLORIDE [Concomitant]
     Dosage: UD
     Route: 048

REACTIONS (1)
  - Vitreous floaters [Unknown]
